FAERS Safety Report 10340835 (Version 1)
Quarter: 2014Q3

REPORT INFORMATION
  Report Type: Spontaneous
  Country: US (occurrence: US)
  Receive Date: 20140724
  Receipt Date: 20140724
  Transmission Date: 20150326
  Serious: No
  Sender: FDA-Public Use
  Company Number: US-009507513-1407USA011248

PATIENT
  Sex: Female
  Weight: 54.42 kg

DRUGS (2)
  1. NUVARING [Suspect]
     Active Substance: ETHINYL ESTRADIOL\ETONOGESTREL
     Dosage: NEW RING WAS INSERTED
  2. NUVARING [Suspect]
     Active Substance: ETHINYL ESTRADIOL\ETONOGESTREL
     Dosage: 1 RING PER 3 WEEK USE
     Route: 067

REACTIONS (2)
  - Device expulsion [Recovered/Resolved]
  - Incorrect drug administration duration [Unknown]
